FAERS Safety Report 6873506-3 (Version None)
Quarter: 2010Q3

REPORT INFORMATION
  Report Type: 
  Country: None (occurrence: None)
  Receive Date: 20100723
  Receipt Date: 20090123
  Transmission Date: 20110219
  Serious: No
  Sender: FDA-Public Use
  Company Number: US-PFIZER INC-2009161042

PATIENT
  Sex: Male
  Weight: 81.633 kg

DRUGS (3)
  1. CHANTIX [Suspect]
     Indication: SMOKING CESSATION THERAPY
     Dosage: 1 MG, 2X/DAY
     Route: 048
     Dates: start: 20090111
  2. VITAMINS [Concomitant]
     Dosage: UNK
  3. FISH OIL [Concomitant]
     Dosage: UNK

REACTIONS (3)
  - ABNORMAL BEHAVIOUR [None]
  - DEPRESSED MOOD [None]
  - MOOD ALTERED [None]
